FAERS Safety Report 6103343-9 (Version None)
Quarter: 2009Q1

REPORT INFORMATION
  Report Type: 
  Country: None (occurrence: None)
  Receive Date: 20090305
  Receipt Date: 20090224
  Transmission Date: 20090719
  Serious: Yes (Other)
  Sender: FDA-Public Use
  Company Number: US-ALLERGAN-0902626US

PATIENT
  Sex: Male

DRUGS (5)
  1. BRIMONIDINE 0.2% SOL [Suspect]
     Indication: OCULAR HYPERTENSION
     Route: 047
  2. TRIAMCINOLONE ACETONIDE [Suspect]
     Indication: UVEITIS
     Dosage: UNK, SINGLE
     Route: 031
  3. TRIAMCINOLONE ACETONIDE [Suspect]
     Dosage: UNK, SINGLE
     Route: 031
  4. TIMOLOL MALEATE [Suspect]
     Indication: OCULAR HYPERTENSION
     Route: 047
  5. BRINZOLAMIDE [Suspect]
     Indication: OCULAR HYPERTENSION
     Route: 047

REACTIONS (1)
  - OCULAR HYPERTENSION [None]
